FAERS Safety Report 4316363-1 (Version None)
Quarter: 2004Q1

REPORT INFORMATION
  Report Type: 
  Country: None (occurrence: None)
  Receive Date: 20040312
  Receipt Date: 20040312
  Transmission Date: 20041129
  Serious: Yes (Life-Threatening, Hospitalization)
  Sender: FDA-Public Use
  Company Number: None

PATIENT
  Age: 26 Year
  Sex: Male
  Weight: 61.2356 kg

DRUGS (1)
  1. BENZACLIN [Suspect]
     Indication: ACNE
     Dosage: DAILY TOPICAL
     Route: 061
     Dates: start: 20030501, end: 20030522

REACTIONS (3)
  - ABDOMINAL PAIN [None]
  - COLITIS [None]
  - LOOSE STOOLS [None]
